FAERS Safety Report 4983884-8 (Version None)
Quarter: 2006Q2

REPORT INFORMATION
  Report Type: 
  Country: None (occurrence: None)
  Receive Date: 20060426
  Receipt Date: 20050513
  Transmission Date: 20061013
  Serious: Yes (Hospitalization)
  Sender: FDA-Public Use
  Company Number: US-MERCK-0505USA01808

PATIENT
  Age: 64 Year
  Sex: Male
  Weight: 91 kg

DRUGS (10)
  1. VIOXX [Suspect]
     Indication: CORONARY ARTERY DISEASE
     Route: 048
     Dates: start: 19990101, end: 20040101
  2. NITROGLYCERIN [Concomitant]
     Route: 065
  3. SINGULAIR [Concomitant]
     Route: 065
  4. PROZAC [Concomitant]
     Route: 065
  5. GENTAMICIN [Concomitant]
     Route: 065
  6. HYDROCODONE BITARTRATE [Concomitant]
     Route: 065
  7. PREVACID [Concomitant]
     Route: 065
  8. LIPITOR [Concomitant]
     Route: 065
  9. CIPROFLOXACIN HCL [Concomitant]
     Route: 065
  10. ALLEGRA [Concomitant]
     Route: 065

REACTIONS (19)
  - ABDOMINAL PAIN [None]
  - ANGINA PECTORIS [None]
  - ASTHENIA [None]
  - BACK PAIN [None]
  - CARDIAC DISORDER [None]
  - CARDIOMEGALY [None]
  - CHEST PAIN [None]
  - CORONARY ARTERY DISEASE [None]
  - DYSPNOEA [None]
  - FALL [None]
  - GASTROOESOPHAGEAL REFLUX DISEASE [None]
  - HYPERCHOLESTEROLAEMIA [None]
  - HYPERTENSION [None]
  - INJURY [None]
  - MYELOPATHY [None]
  - MYOCARDIAL INFARCTION [None]
  - NAUSEA [None]
  - PALPITATIONS [None]
  - RADICULOPATHY [None]
